FAERS Safety Report 6296425-2 (Version None)
Quarter: 2009Q3

REPORT INFORMATION
  Report Type: 
  Country: None (occurrence: None)
  Receive Date: 20090803
  Receipt Date: 20090803
  Transmission Date: 20100115
  Serious: Yes (Other)
  Sender: FDA-Public Use
  Company Number: None

PATIENT
  Age: 78 Year
  Sex: Male
  Weight: 63.5036 kg

DRUGS (2)
  1. LYRICA [Suspect]
     Indication: ANKYLOSING SPONDYLITIS
     Dosage: 75 MG 1 PO
     Route: 048
     Dates: start: 20090730, end: 20090731
  2. ULTRAM ER [Concomitant]

REACTIONS (1)
  - DIZZINESS [None]
